FAERS Safety Report 19997556 (Version 3)
Quarter: 2023Q4

REPORT INFORMATION
  Report Type: Other
  Country: MX (occurrence: None)
  Receive Date: 20211026
  Receipt Date: 20231212
  Transmission Date: 20240109
  Serious: Yes (Disabling, Other)
  Sender: FDA-Public Use
  Company Number: MX-ROCHE-2944514

PATIENT
  Age: 31 Year
  Sex: Male
  Weight: 97 kg

DRUGS (1)
  1. OCREVUS [Suspect]
     Active Substance: OCRELIZUMAB
     Indication: Multiple sclerosis
     Dosage: RECENT DOSE: 18/MAY/2020
     Route: 042
     Dates: start: 20200218

REACTIONS (10)
  - Limb discomfort [Not Recovered/Not Resolved]
  - Gait disturbance [Not Recovered/Not Resolved]
  - Hypoaesthesia [Not Recovered/Not Resolved]
  - Gait disturbance [Not Recovered/Not Resolved]
  - Insomnia [Not Recovered/Not Resolved]
  - Paraesthesia [Not Recovered/Not Resolved]
  - Pyrexia [Not Recovered/Not Resolved]
  - Dizziness [Not Recovered/Not Resolved]
  - Speech disorder [Not Recovered/Not Resolved]
  - Poisoning [Recovered/Resolved]

NARRATIVE: CASE EVENT DATE: 20211020
